FAERS Safety Report 6740463-X (Version None)
Quarter: 2010Q2

REPORT INFORMATION
  Report Type: 
  Country: None (occurrence: None)
  Receive Date: 20100525
  Receipt Date: 20100512
  Transmission Date: 20101027
  Serious: Yes (Hospitalization, Other)
  Sender: FDA-Public Use
  Company Number: PHHY2010BR30813

PATIENT
  Age: 59 Year
  Sex: Female
  Weight: 78 kg

DRUGS (11)
  1. DIOVAN HCT [Suspect]
     Indication: HYPERTENSION
     Dosage: 1 TABLET 160/12.5 MG, DAILY
     Route: 048
  2. ATENOLOL [Concomitant]
     Indication: HYPERTENSION
     Dosage: 25 MG, BID
     Route: 048
  3. ASPIRIN [Concomitant]
     Indication: CARDIOVASCULAR EVENT PROPHYLAXIS
     Dosage: 2 DF, AFTER LUNCH
     Route: 048
  4. PURAN T4 [Concomitant]
     Dosage: 1 DF, IN THE MORNING
  5. LOPIGREL [Concomitant]
     Indication: ANTICOAGULANT THERAPY
     Dosage: 1 DF, DAILY
  6. SUSTRATE [Concomitant]
     Indication: CARDIAC DISORDER
     Dosage: 1 TABLET, DAILY
  7. TRIMETAZIDINE [Concomitant]
     Indication: CHEST PAIN
     Dosage: 1 DF, BID
  8. ZETIA [Concomitant]
     Indication: BLOOD CHOLESTEROL INCREASED
     Dosage: 1 DF, DAILY
  9. ZETIA [Concomitant]
     Indication: BLOOD TRIGLYCERIDES INCREASED
  10. MONALESS [Concomitant]
     Indication: BLOOD CHOLESTEROL INCREASED
     Dosage: 1 DF, (AFTER LUNCH)
  11. MONALESS [Concomitant]
     Indication: BLOOD TRIGLYCERIDES INCREASED

REACTIONS (2)
  - DRUG DOSE OMISSION [None]
  - VASCULAR GRAFT [None]
